FAERS Safety Report 15413064 (Version 1)
Quarter: 2018Q3

REPORT INFORMATION
  Report Type: Report from Study
  Country: US (occurrence: US)
  Receive Date: 20180921
  Receipt Date: 20180921
  Transmission Date: 20181010
  Serious: Yes (Other)
  Sender: FDA-Public Use
  Company Number: US-GILEAD-2018-0364195

PATIENT
  Age: 79 Year
  Sex: Male

DRUGS (1)
  1. RANOLAZINE. [Suspect]
     Active Substance: RANOLAZINE
     Indication: ANGINA PECTORIS
     Dosage: 1000 MG, BID
     Route: 048
     Dates: start: 2013

REACTIONS (3)
  - Cardiac pacemaker insertion [Not Recovered/Not Resolved]
  - Memory impairment [Not Recovered/Not Resolved]
  - Stent placement [Not Recovered/Not Resolved]

NARRATIVE: CASE EVENT DATE: 2013
